FAERS Safety Report 6851315-9 (Version None)
Quarter: 2010Q3

REPORT INFORMATION
  Report Type: 
  Country: None (occurrence: None)
  Receive Date: 20100717
  Receipt Date: 20080115
  Transmission Date: 20110219
  Serious: No
  Sender: FDA-Public Use
  Company Number: US-PFIZER INC-2008005742

PATIENT
  Sex: Male
  Weight: 64.4 kg

DRUGS (6)
  1. CHANTIX [Suspect]
     Indication: SMOKING CESSATION THERAPY
     Dates: start: 20080112
  2. ATIVAN [Concomitant]
  3. ACETYLSALICYLIC ACID [Concomitant]
  4. TIAZAC [Concomitant]
  5. BENICAR [Concomitant]
  6. TYLENOL [Concomitant]

REACTIONS (2)
  - FATIGUE [None]
  - SOMNOLENCE [None]
